FAERS Safety Report 15366714 (Version 2)
Quarter: 2018Q3

REPORT INFORMATION
  Report Type: Report from Study
  Country: US (occurrence: US)
  Receive Date: 20180910
  Receipt Date: 20180925
  Transmission Date: 20181010
  Serious: Yes (Other)
  Sender: FDA-Public Use
  Company Number: US-UCBSA-2017009021

PATIENT
  Age: 36 Year
  Sex: Male
  Weight: 172 kg

DRUGS (9)
  1. BRIVIACT [Suspect]
     Active Substance: BRIVARACETAM
     Indication: SEIZURE
     Dosage: UNK
     Dates: start: 20180801
  2. LYRICA [Concomitant]
     Active Substance: PREGABALIN
     Indication: PAIN
     Dosage: 300 MG, 2X/DAY (BID)
  3. LACOSAMIDE. [Suspect]
     Active Substance: LACOSAMIDE
     Dosage: 200 MG, 2X/DAY (BID)
     Route: 048
     Dates: end: 201708
  4. DILANTIN [Concomitant]
     Active Substance: PHENYTOIN
     Indication: SEIZURE
     Dosage: 200 MG, 2X/DAY (BID)
     Dates: start: 1994
  5. LACOSAMIDE. [Suspect]
     Active Substance: LACOSAMIDE
     Indication: PARTIAL SEIZURES
     Dosage: 400 MG, 2X/DAY (BID)
     Route: 048
  6. LACOSAMIDE. [Suspect]
     Active Substance: LACOSAMIDE
     Dosage: UNK
     Dates: start: 20180801
  7. KEPPRA [Suspect]
     Active Substance: LEVETIRACETAM
     Indication: PARTIAL SEIZURES
     Dosage: 500 MG
  8. VIGABATRIN. [Concomitant]
     Active Substance: VIGABATRIN
     Indication: PRODUCT USED FOR UNKNOWN INDICATION
  9. ESLICARBAZEPINE [Concomitant]
     Active Substance: ESLICARBAZEPINE
     Indication: SEIZURE
     Dosage: UNK

REACTIONS (8)
  - Drug ineffective [Unknown]
  - Dizziness [Recovered/Resolved]
  - Off label use [Unknown]
  - Seizure [Not Recovered/Not Resolved]
  - Fall [Not Recovered/Not Resolved]
  - Sexual dysfunction [Not Recovered/Not Resolved]
  - Joint dislocation [Not Recovered/Not Resolved]
  - Overdose [Unknown]

NARRATIVE: CASE EVENT DATE: 201702
